FAERS Safety Report 14517617 (Version 3)
Quarter: 2024Q4

REPORT INFORMATION
  Report Type: Spontaneous
  Country: US (occurrence: US)
  Receive Date: 20180212
  Receipt Date: 20241202
  Transmission Date: 20250115
  Serious: Yes (Hospitalization, Other)
  Sender: PFIZER
  Company Number: US-PFIZER INC-2017526870

PATIENT
  Age: 72 Year
  Sex: Female
  Weight: 87 kg

DRUGS (4)
  1. IBRANCE [Suspect]
     Active Substance: PALBOCICLIB
     Indication: Breast cancer metastatic
     Dosage: 125 MG, CYCLIC (TAKES ONCE A DAY FOR 21 DAYS)
     Route: 048
     Dates: start: 201707, end: 20171129
  2. IBRANCE [Suspect]
     Active Substance: PALBOCICLIB
     Dosage: 100 MG, CYCLIC (3 WEEKS ON 1 WEEK OFF)/100 MG ORALLY DAILY X 21 DAYS EVERY 28 DAYS.
     Route: 048
     Dates: start: 202301
  3. IBRANCE [Suspect]
     Active Substance: PALBOCICLIB
     Dosage: 100 MG, DAILY (TAKE 1 CAPSULE EVERY DAY )
     Route: 048
  4. LETROZOLE [Concomitant]
     Active Substance: LETROZOLE
     Indication: Hormone therapy
     Dosage: 2.5 MG, 1X/DAY
     Dates: start: 201707

REACTIONS (8)
  - Thrombocytopenia [Unknown]
  - Leukopenia [Unknown]
  - Hypotension [Unknown]
  - Dizziness [Unknown]
  - Dyspnoea [Unknown]
  - Dry mouth [Unknown]
  - Chills [Unknown]
  - Lacrimation increased [Unknown]

NARRATIVE: CASE EVENT DATE: 20170101
